FAERS Safety Report 9034340 (Version 1)
Quarter: 2013Q1

REPORT INFORMATION
  Report Type: Spontaneous
  Country: US (occurrence: None)
  Receive Date: 20130116
  Receipt Date: 20130116
  Transmission Date: 20140127
  Serious: Yes (Other)
  Sender: FDA-Public Use
  Company Number: None

PATIENT
  Age: 8 Month
  Sex: Male
  Weight: 7.26 kg

DRUGS (1)
  1. PEDIACARE IBUPROFEN 50MG/1.25ML MEDITECH PRODUCTS INC. [Suspect]
     Indication: ANALGESIC THERAPY
     Dosage: 50MG/1.25ML  2-3 TIMES PER DAY PO
     Route: 048
     Dates: start: 20130112, end: 20130115

REACTIONS (4)
  - Refusal of treatment by patient [None]
  - Irritability [None]
  - Throat irritation [None]
  - Throat irritation [None]
